FAERS Safety Report 23037074 (Version 3)
Quarter: 2024Q4

REPORT INFORMATION
  Report Type: Report from Study
  Country: CA (occurrence: CA)
  Receive Date: 20231006
  Receipt Date: 20241217
  Transmission Date: 20250115
  Serious: Yes (Hospitalization, Other)
  Sender: SANDOZ
  Company Number: CA-SANDOZ-SDZ2023CA022579

PATIENT
  Sex: Female

DRUGS (2)
  1. HYRIMOZ [Suspect]
     Active Substance: ADALIMUMAB-ADAZ
     Indication: Crohn^s disease
     Dosage: 40 MG, QW
     Route: 058
     Dates: start: 20210915
  2. HYRIMOZ [Suspect]
     Active Substance: ADALIMUMAB-ADAZ
     Dosage: 80 MG, QW
     Route: 058

REACTIONS (7)
  - Gastric perforation [Unknown]
  - Diverticulitis [Unknown]
  - Crohn^s disease [Unknown]
  - Faecal calprotectin abnormal [Unknown]
  - Harvey-Bradshaw index abnormal [Unknown]
  - Off label use [Unknown]
  - Product dose omission issue [Unknown]
